FAERS Safety Report 17208272 (Version 2)
Quarter: 2020Q1

REPORT INFORMATION
  Report Type: Spontaneous
  Country: US (occurrence: US)
  Receive Date: 20191227
  Receipt Date: 20200117
  Transmission Date: 20200409
  Serious: No
  Sender: FDA-Public Use
  Company Number: US-UCBSA-2019007381

PATIENT
  Age: 35 Year
  Sex: Male

DRUGS (2)
  1. LEVETIRACETAM. [Suspect]
     Active Substance: LEVETIRACETAM
     Indication: EPILEPSY
     Dosage: UNK
  2. LACOSAMIDE. [Suspect]
     Active Substance: LACOSAMIDE
     Indication: EPILEPSY
     Dosage: UNK

REACTIONS (6)
  - Drug ineffective [Unknown]
  - Disorientation [Unknown]
  - Anxiety [Unknown]
  - Aura [Unknown]
  - Confusional state [Unknown]
  - Depression [Unknown]
